FAERS Safety Report 12270897 (Version 1)
Quarter: 2016Q2

REPORT INFORMATION
  Report Type: Spontaneous
  Country: GB (occurrence: GB)
  Receive Date: 20160415
  Receipt Date: 20160415
  Transmission Date: 20160815
  Serious: Yes (Disabling, Other)
  Sender: FDA-Public Use
  Company Number: GB-AMGEN-GBRSP2016044277

PATIENT
  Age: 49 Year
  Sex: Female
  Weight: 51 kg

DRUGS (10)
  1. SERETIDE [Concomitant]
     Active Substance: FLUTICASONE PROPIONATE\SALMETEROL XINAFOATE
     Dosage: UNK
  2. IVABRADINE [Suspect]
     Active Substance: IVABRADINE
     Indication: TACHYCARDIA
     Dosage: 10 MG, QD
     Route: 048
     Dates: start: 20150908, end: 20160323
  3. INDOMETACIN [Concomitant]
     Active Substance: INDOMETHACIN
     Dosage: UNK
  4. VENTOLIN [Concomitant]
     Active Substance: ALBUTEROL SULFATE
     Dosage: UNK
  5. COLCHICINE. [Concomitant]
     Active Substance: COLCHICINE
     Dosage: UNK
  6. ZYDOL                              /00599202/ [Concomitant]
     Active Substance: TRAMADOL HYDROCHLORIDE
     Dosage: UNK
  7. SOLPADOL                           /00116401/ [Concomitant]
     Active Substance: ACETAMINOPHEN\CODEINE PHOSPHATE
     Dosage: UNK
  8. PERINDOPRIL TERT-BUTYLAMINE [Concomitant]
     Dosage: UNK
  9. OMEPRAZOLE. [Concomitant]
     Active Substance: OMEPRAZOLE
     Dosage: UNK
  10. ORAMORPH [Concomitant]
     Active Substance: MORPHINE SULFATE
     Dosage: UNK

REACTIONS (4)
  - Inappropriate schedule of drug administration [Unknown]
  - Impaired driving ability [Unknown]
  - Visual impairment [Not Recovered/Not Resolved]
  - Photopsia [Unknown]
